FAERS Safety Report 18444196 (Version 1)
Quarter: 2020Q4

REPORT INFORMATION
  Report Type: Other
  Country: CO (occurrence: CO)
  Receive Date: 20201030
  Receipt Date: 20201030
  Transmission Date: 20210114
  Serious: Yes (Hospitalization, Other)
  Sender: FDA-Public Use
  Company Number: CO-ROCHE-2687465

PATIENT
  Age: 55 Year
  Sex: Female
  Weight: 94 kg

DRUGS (3)
  1. METHOTREXATE. [Concomitant]
     Active Substance: METHOTREXATE
     Indication: RHEUMATOID ARTHRITIS
     Dosage: DOSE WAS UNKNOWN
     Route: 048
  2. LEVOTHYROXINE. [Concomitant]
     Active Substance: LEVOTHYROXINE
     Indication: HYPOTHYROIDISM
     Route: 048
  3. ACTEMRA [Suspect]
     Active Substance: TOCILIZUMAB
     Indication: RHEUMATOID ARTHRITIS
     Route: 042
     Dates: start: 2018

REACTIONS (9)
  - Urinary tract infection [Unknown]
  - Abscess [Not Recovered/Not Resolved]
  - Anosmia [Recovered/Resolved]
  - COVID-19 [Recovered/Resolved]
  - Pyomyositis [Not Recovered/Not Resolved]
  - Pyrexia [Recovered/Resolved]
  - Ageusia [Recovered/Resolved]
  - Cellulitis [Unknown]
  - Osteomyelitis acute [Not Recovered/Not Resolved]

NARRATIVE: CASE EVENT DATE: 20200720
